FAERS Safety Report 9532878 (Version 1)
Quarter: 2013Q2

REPORT INFORMATION
  Report Type: Spontaneous
  Country: US (occurrence: None)
  Receive Date: 20130418
  Receipt Date: 20130418
  Transmission Date: 20140414
  Serious: Yes (Other)
  Sender: FDA-Public Use
  Company Number: 2012PROUSA02339

PATIENT
  Age: 74 Year
  Sex: Male
  Weight: 95.2 kg

DRUGS (7)
  1. PROVENGE [Suspect]
     Indication: PROSTATE CANCER METASTATIC
     Route: 042
     Dates: start: 20121119, end: 20121119
  2. HYDROCHLOROTHIAZIDE (HYDROCHLOROTHIAZIDE) [Concomitant]
  3. COLCHICINE (COLCHICINE) [Concomitant]
  4. TAMSULOSIN (TAMSULOSIN) [Concomitant]
  5. PHENAZOPYRIDINE (PHENAZOPYRIDINE HYDROCHLORIDE) [Concomitant]
  6. SAXAGLIPTIN (SAXAGLIPTIN HYDROCHLORIDE) [Concomitant]
  7. METOPROLOL TARTRATE (METOPROLOL TARTRATE) [Concomitant]

REACTIONS (1)
  - Culture positive [None]
